FAERS Safety Report 8994941 (Version 1)
Quarter: 2012Q4

REPORT INFORMATION
  Report Type: Spontaneous
  Country: US (occurrence: None)
  Receive Date: 20121228
  Receipt Date: 20121228
  Transmission Date: 20130627
  Serious: Yes (Other)
  Sender: FDA-Public Use
  Company Number: None

PATIENT
  Sex: Male

DRUGS (1)
  1. LINAGLIPITIN [Suspect]
     Dates: start: 20121024, end: 20121102

REACTIONS (2)
  - Tremor [None]
  - Blood glucose increased [None]
